FAERS Safety Report 8960550 (Version 1)
Quarter: 2012Q4

REPORT INFORMATION
  Report Type: Spontaneous
  Country: KR (occurrence: None)
  Receive Date: 20121203
  Receipt Date: 20121203
  Transmission Date: 20130627
  Serious: Yes (Hospitalization)
  Sender: FDA-Public Use
  Company Number: KR-AGG-11-2012-0524

PATIENT

DRUGS (1)
  1. TIROFIBAN HYDROCHLORIDE [Suspect]
     Indication: EMBOLISM
     Route: 013

REACTIONS (2)
  - Cerebral haemorrhage [None]
  - Coma scale abnormal [None]
